FAERS Safety Report 9775864 (Version 2)
Quarter: 2014Q1

REPORT INFORMATION
  Report Type: Spontaneous
  Country: US (occurrence: US)
  Receive Date: 20131220
  Receipt Date: 20140124
  Transmission Date: 20141002
  Serious: No
  Sender: FDA-Public Use
  Company Number: US-FRI-1000052372

PATIENT
  Age: 60 Year
  Sex: Male

DRUGS (5)
  1. LINZESS [Suspect]
     Indication: CONSTIPATION
     Dosage: 145 MCG
     Route: 048
     Dates: start: 201310, end: 201310
  2. LINZESS [Suspect]
     Dosage: 145 MCG
     Route: 048
     Dates: start: 201310, end: 20131207
  3. LINZESS [Suspect]
     Dosage: 290 MCG
     Route: 048
     Dates: start: 20131208, end: 20131208
  4. LINZESS [Suspect]
     Indication: CONSTIPATION
     Dosage: 145 MCG
     Route: 048
     Dates: start: 20131210, end: 20131210
  5. LINZESS [Suspect]
     Dosage: 145 MCG
     Route: 048
     Dates: start: 20131213, end: 20131213

REACTIONS (4)
  - Haemorrhoidal haemorrhage [Not Recovered/Not Resolved]
  - Abdominal pain upper [Not Recovered/Not Resolved]
  - Diarrhoea [Recovered/Resolved]
  - Intentional drug misuse [Recovered/Resolved]
